FAERS Safety Report 4916536-0 (Version None)
Quarter: 2006Q1

REPORT INFORMATION
  Report Type: 
  Country: None (occurrence: None)
  Receive Date: 20060216
  Receipt Date: 20060216
  Transmission Date: 20060701
  Serious: Yes (Hospitalization)
  Sender: FDA-Public Use
  Company Number: None

PATIENT
  Sex: Male

DRUGS (4)
  1. THALIDOMIDE [Suspect]
     Indication: ACUTE MYELOID LEUKAEMIA
     Dosage: 100MG BID PO
     Route: 048
  2. THALIDOMIDE [Suspect]
     Indication: MYELODYSPLASTIC SYNDROME
     Dosage: 100MG BID PO
     Route: 048
  3. ARSENIC [Suspect]
     Indication: ACUTE MYELOID LEUKAEMIA
     Dosage: 0.25 MG/KG  BI-WEEKLY IV
     Route: 042
  4. ARSENIC [Suspect]
     Indication: MYELODYSPLASTIC SYNDROME
     Dosage: 0.25 MG/KG  BI-WEEKLY IV
     Route: 042

REACTIONS (3)
  - DISEASE PROGRESSION [None]
  - RESPIRATORY DISTRESS [None]
  - WHITE BLOOD CELL COUNT INCREASED [None]
